FAERS Safety Report 7210597-4 (Version None)
Quarter: 2010Q4

REPORT INFORMATION
  Report Type: 
  Country: None (occurrence: None)
  Receive Date: 20101223
  Receipt Date: 20101210
  Transmission Date: 20110411
  Serious: Yes (Other)
  Sender: FDA-Public Use
  Company Number: 2010P1002925

PATIENT
  Age: 13 Year
  Sex: Female
  Weight: 70.3075 kg

DRUGS (3)
  1. OVIDE [Suspect]
     Indication: LICE INFESTATION
     Dosage: 1 APPLICATION;X1;TOP
     Route: 061
     Dates: start: 20101123, end: 20101123
  2. CON MEDS [Concomitant]
  3. PREV MEDS [Concomitant]

REACTIONS (6)
  - APPLICATION SITE BURN [None]
  - APPLICATION SITE PAIN [None]
  - APPLICATION SITE SCAB [None]
  - BURNS SECOND DEGREE [None]
  - SCREAMING [None]
  - SKIN DISORDER [None]
